FAERS Safety Report 4578612-4 (Version None)
Quarter: 2005Q1

REPORT INFORMATION
  Report Type: 
  Country: None (occurrence: None)
  Receive Date: 20050207
  Receipt Date: 20050207
  Transmission Date: 20050727
  Serious: No
  Sender: FDA-Public Use
  Company Number: None

PATIENT
  Age: 81 Year
  Sex: Male
  Weight: 73 kg

DRUGS (7)
  1. HEPARIN [Suspect]
     Indication: HYPERTENSION
     Dosage: 7.5 UG/KG/HR IV
     Route: 042
     Dates: start: 20040803, end: 20040818
  2. HEPARIN [Suspect]
     Indication: RENAL FAILURE CHRONIC
     Dosage: 7.5 UG/KG/HR IV
     Route: 042
     Dates: start: 20040803, end: 20040818
  3. LASIX [Concomitant]
  4. LOSEC [Concomitant]
  5. COLACE [Concomitant]
  6. SENNAKOT [Concomitant]
  7. METOCLOPRAMIDE [Concomitant]

REACTIONS (4)
  - ABDOMINAL DISTENSION [None]
  - BLOODY DISCHARGE [None]
  - HAEMATOMA [None]
  - HAEMORRHAGE [None]
